FAERS Safety Report 9617780 (Version 2)
Quarter: 2013Q4

REPORT INFORMATION
  Report Type: Report from Study
  Country: BR (occurrence: BR)
  Receive Date: 20131011
  Receipt Date: 20131108
  Transmission Date: 20140711
  Serious: No
  Sender: FDA-Public Use
  Company Number: PHHY2013BR114431

PATIENT
  Sex: Female

DRUGS (8)
  1. EXELON [Suspect]
     Indication: MEMORY IMPAIRMENT
     Dosage: 1 DF, DAILY
     Route: 048
  2. EXELON PATCH [Suspect]
     Indication: MEMORY IMPAIRMENT
     Dosage: UNK UKN, QOD
     Route: 062
  3. EXELON PATCH [Suspect]
     Dosage: 13.3 MG, (PATCH 15 CM2)
     Route: 062
  4. SIMVASTATIN [Concomitant]
     Dosage: UNK UKN, UNK
  5. RISPERIDONE [Concomitant]
     Dosage: UNK UKN, UNK
  6. FERROUS SULFATE [Concomitant]
     Dosage: UNK UKN, UNK
  7. ACIDE FOLIQUE [Concomitant]
     Dosage: 1 DF, DAILY AT 12 ? CLOCK
  8. LOSARTAN [Concomitant]
     Dosage: UNK UKN, UNK

REACTIONS (2)
  - Influenza [Recovered/Resolved]
  - Gait disturbance [Recovered/Resolved]
